FAERS Safety Report 19964748 (Version 3)
Quarter: 2022Q1

REPORT INFORMATION
  Report Type: Spontaneous
  Country: IT (occurrence: IT)
  Receive Date: 20211018
  Receipt Date: 20220124
  Transmission Date: 20220424
  Serious: Yes (Other)
  Sender: FDA-Public Use
  Company Number: IT-MLMSERVICE-20210928-3130662-1

PATIENT
  Age: 68 Year
  Sex: Male

DRUGS (14)
  1. DOXORUBICIN HYDROCHLORIDE [Suspect]
     Active Substance: DOXORUBICIN HYDROCHLORIDE
     Indication: Chronic myelomonocytic leukaemia
     Dosage: UNK UNK, CYCLIC (5 {CYCLICAL})
  2. DOXORUBICIN HYDROCHLORIDE [Suspect]
     Active Substance: DOXORUBICIN HYDROCHLORIDE
     Indication: Diffuse large B-cell lymphoma
  3. VINCRISTINE SULFATE [Suspect]
     Active Substance: VINCRISTINE SULFATE
     Indication: Chronic myelomonocytic leukaemia
     Dosage: 3 MG, CYCLIC (3 {CYCLICAL})
     Route: 042
  4. VINCRISTINE SULFATE [Suspect]
     Active Substance: VINCRISTINE SULFATE
     Indication: Diffuse large B-cell lymphoma
  5. RITUXIMAB [Suspect]
     Active Substance: RITUXIMAB
     Indication: Diffuse large B-cell lymphoma
     Dosage: 5600 MG, CYCLIC (4 {CYCLICAL})
     Route: 058
  6. RITUXIMAB [Suspect]
     Active Substance: RITUXIMAB
     Indication: Chronic myelomonocytic leukaemia
     Dosage: 375 MG/M2, CYCLIC (1 {CYCLICAL})
     Route: 042
  7. CYCLOPHOSPHAMIDE [Suspect]
     Active Substance: CYCLOPHOSPHAMIDE
     Indication: Chronic myelomonocytic leukaemia
     Dosage: 3750 MG/M2, CYCLIC (5 {CYCLICAL})
     Route: 042
  8. CYCLOPHOSPHAMIDE [Suspect]
     Active Substance: CYCLOPHOSPHAMIDE
     Indication: Diffuse large B-cell lymphoma
  9. PREDNISONE [Suspect]
     Active Substance: PREDNISONE
     Indication: Diffuse large B-cell lymphoma
     Dosage: 100 MG, CYCLIC (2 {CYCLICAL}, ON DAYS 1 TO 5)
     Route: 048
  10. PREDNISONE [Suspect]
     Active Substance: PREDNISONE
     Indication: Chronic myelomonocytic leukaemia
  11. FILGRASTIM [Concomitant]
     Active Substance: FILGRASTIM
     Indication: Prophylaxis
     Dosage: 30 MU GIVEN AT DAYS + 8+9 OF EACH CYCLE
  12. SULFAMETHOXAZOLE\TRIMETHOPRIM [Concomitant]
     Active Substance: SULFAMETHOXAZOLE\TRIMETHOPRIM
     Indication: Prophylaxis
     Dosage: CO-TRIMOXAZOLE 800 MG BID TWICE A WEEK
  13. ERYTHROPOIETIN ZETA [Concomitant]
     Indication: Prophylaxis
     Dosage: 40000 IU, WEEKLY
  14. ACYCLOVIR [Concomitant]
     Active Substance: ACYCLOVIR
     Indication: Prophylaxis
     Dosage: 800 MG, 2X/DAY (ONCE EVERY 12HOUR)

REACTIONS (7)
  - Neutropenia [Unknown]
  - Anaemia [Recovering/Resolving]
  - Thrombocytopenia [Recovering/Resolving]
  - Transaminases increased [Unknown]
  - Dysphagia [Unknown]
  - Constipation [Unknown]
  - Off label use [Unknown]
